FAERS Safety Report 6370664-4 (Version None)
Quarter: 2009Q3

REPORT INFORMATION
  Report Type: 
  Country: None (occurrence: None)
  Receive Date: 20090923
  Receipt Date: 20070703
  Transmission Date: 20100115
  Serious: Yes (Other)
  Sender: FDA-Public Use
  Company Number: US-ASTRAZENECA-2006UW25352

PATIENT
  Age: 49 Year
  Sex: Female
  Weight: 66.3 kg

DRUGS (14)
  1. SEROQUEL [Suspect]
     Indication: FEELING OF RELAXATION
     Dosage: 25-200 MG
     Route: 048
     Dates: start: 20031007
  2. PAXIL CR [Concomitant]
     Dosage: 25 MG 3 PILLS EVERY NIGHT
     Dates: start: 20041116
  3. GLUCOPHAGE [Concomitant]
     Dates: start: 20041116
  4. DILANTIN [Concomitant]
     Dates: start: 20041116
  5. PREVACID [Concomitant]
     Dates: start: 20041116
  6. AVALIDE [Concomitant]
     Dates: start: 20041116
  7. LIPITOR [Concomitant]
     Dates: start: 20041116
  8. FLONASE [Concomitant]
     Dates: start: 20050524
  9. PREMARIN [Concomitant]
     Dates: start: 20030801
  10. TENORMIN [Concomitant]
     Dates: start: 20030801
  11. DEMADEX [Concomitant]
     Dates: start: 20030801
  12. POTASSIUM CHLORIDE [Concomitant]
     Dates: start: 20030801
  13. ABILIFY [Concomitant]
     Dates: start: 20030801
  14. EFFEXOR XR [Concomitant]
     Dates: start: 20030801

REACTIONS (2)
  - DIABETES MELLITUS [None]
  - PANCREATITIS [None]
